FAERS Safety Report 15940096 (Version 2)
Quarter: 2019Q1

REPORT INFORMATION
  Report Type: Report from Study
  Country: IL (occurrence: IL)
  Receive Date: 20190208
  Receipt Date: 20190222
  Transmission Date: 20190417
  Serious: Yes (Life-Threatening, Hospitalization, Other)
  Sender: FDA-Public Use
  Company Number: IL-AMGEN-ISRSL2019018262

PATIENT
  Age: 81 Year
  Sex: Female

DRUGS (7)
  1. NPLATE [Suspect]
     Active Substance: ROMIPLOSTIM
     Indication: IMMUNE THROMBOCYTOPENIC PURPURA
     Dosage: BETWEEN 75-125 MCG ONCE A WEEK
     Route: 065
     Dates: start: 20160627
  2. OPTALGIN [Suspect]
     Active Substance: METAMIZOLE
     Indication: OSTEOARTHRITIS
     Dosage: UNK UNK, QD
     Route: 065
  3. SLOW-K [Concomitant]
     Active Substance: POTASSIUM CHLORIDE
     Dosage: 600 MG, BID
     Route: 048
  4. CARDILOC [Concomitant]
     Active Substance: BISOPROLOL FUMARATE
     Dosage: 2.5 MG, QD
     Route: 048
  5. FOLIC ACID. [Concomitant]
     Active Substance: FOLIC ACID
     Dosage: 5 MG, QD
     Route: 048
  6. KALURIL [Concomitant]
     Indication: HYPERTENSION
     Dosage: UNK
  7. LOSEC [Concomitant]
     Active Substance: OMEPRAZOLE
     Dosage: 20 MG, QD
     Route: 048

REACTIONS (6)
  - Agranulocytosis [Recovered/Resolved]
  - Pulmonary embolism [Unknown]
  - Erysipelas [Unknown]
  - Leukopenia [Unknown]
  - Deep vein thrombosis [Unknown]
  - Neutropenia [Unknown]
